FAERS Safety Report 9473130 (Version 2)
Quarter: 2013Q3

REPORT INFORMATION
  Report Type: Spontaneous
  Country: US (occurrence: US)
  Receive Date: 20130823
  Receipt Date: 20130827
  Transmission Date: 20140515
  Serious: Yes (Death, Life-Threatening, Hospitalization, Other)
  Sender: FDA-Public Use
  Company Number: US-BAYER-2013-099592

PATIENT
  Age: 87 Year
  Sex: Female
  Weight: 52 kg

DRUGS (19)
  1. BAYER ASPIRIN REGIMEN ADULT LOW STRENGTH [Suspect]
     Indication: ISCHAEMIC HEART DISEASE PROPHYLAXIS
     Dosage: 81 MG, QD
     Route: 048
     Dates: start: 2011, end: 20130703
  2. NAFCILLIN [Suspect]
     Indication: STAPHYLOCOCCAL BACTERAEMIA
     Dosage: 12 MG,1 IN 4 HR
     Route: 042
     Dates: start: 20130630, end: 20130703
  3. VANCOMYCIN [Suspect]
     Indication: STAPHYLOCOCCAL BACTERAEMIA
     Dosage: 1 GM, ONCE
     Route: 042
     Dates: start: 20130625, end: 20130625
  4. PREDNISONE [Suspect]
     Indication: PAIN
     Dosage: 20 MG, QD
     Route: 048
     Dates: start: 20130624, end: 20130703
  5. HEPARIN [Suspect]
     Indication: THROMBOSIS PROPHYLAXIS
     Dosage: 1500 UNITS, TID
     Route: 058
     Dates: start: 20130623, end: 20130703
  6. CARDIZEM CD [Concomitant]
     Indication: HYPERTENSION
     Dosage: 180 MG, UNK
     Route: 048
     Dates: start: 2011, end: 20130703
  7. LASIX [Concomitant]
     Dosage: 20 MG, ONCE
     Route: 042
     Dates: start: 20130629, end: 20130629
  8. COLACE [Concomitant]
     Indication: CONSTIPATION
     Dosage: 200 MG, BID
     Route: 048
     Dates: start: 20130625, end: 20130704
  9. SYNTHROID [Concomitant]
     Indication: HYPOTHYROIDISM
     Dosage: 25 MCG, QD
     Route: 048
     Dates: start: 2011, end: 20130703
  10. PRILOSEC [Concomitant]
     Indication: GASTROOESOPHAGEAL REFLUX DISEASE
     Dosage: 20 MG, QD
     Route: 048
     Dates: start: 2011, end: 20130703
  11. EXELON [Concomitant]
     Indication: DEMENTIA
     Dosage: 9.5 MG, QD
     Route: 062
     Dates: start: 2010, end: 20130703
  12. EXELON [Concomitant]
     Indication: DEMENTIA
     Dosage: 4.6 MG, UNK
     Route: 062
     Dates: start: 20130624, end: 20130630
  13. TYLENOL [PARACETAMOL] [Concomitant]
     Indication: PAIN
     Dosage: 650 MG, Q4 PRN
     Route: 048
     Dates: start: 20130623, end: 20130703
  14. ALBUTEROL [Concomitant]
     Indication: WHEEZING
     Dosage: 2.5 MG, Q6 PRN
     Route: 045
     Dates: start: 20130628, end: 20130628
  15. ATIVAN [Concomitant]
     Indication: AGITATION
     Dosage: 2 MG, ONCE
     Route: 042
  16. XANAX [Concomitant]
     Indication: AGITATION
     Dosage: .25 MG, ONCE
     Route: 048
     Dates: start: 20130628, end: 20130628
  17. LIDOCAINE [Concomitant]
     Indication: PAIN
     Dosage: UNK UNK, QD
     Route: 062
     Dates: start: 20130629, end: 20130703
  18. MORPHINE [Concomitant]
     Indication: DISCOMFORT
  19. SCOPOLAMINE [Concomitant]
     Indication: RHINORRHOEA

REACTIONS (5)
  - Spinal compression fracture [None]
  - Back pain [None]
  - Spinal epidural haematoma [None]
  - Renal failure acute [None]
  - Lower gastrointestinal haemorrhage [Fatal]
